FAERS Safety Report 20470353 (Version 1)
Quarter: 2022Q1

REPORT INFORMATION
  Report Type: Spontaneous
  Country: US (occurrence: US)
  Receive Date: 20220214
  Receipt Date: 20220214
  Transmission Date: 20220424
  Serious: No
  Sender: FDA-Public Use
  Company Number: US-PFIZER INC-2021684450

PATIENT
  Age: 57 Year
  Sex: Female

DRUGS (1)
  1. IBRANCE [Suspect]
     Active Substance: PALBOCICLIB
     Indication: Breast cancer female
     Dosage: 125 MG, CYCLIC (21 DAYS ON, 7 DAYS OFF ON A 28 DAY CYCLE)

REACTIONS (5)
  - Feeling cold [Unknown]
  - Nausea [Unknown]
  - Dizziness [Recovered/Resolved]
  - Increased appetite [Unknown]
  - Product dose omission issue [Unknown]

NARRATIVE: CASE EVENT DATE: 20210101
